FAERS Safety Report 4662825-7 (Version None)
Quarter: 2005Q2

REPORT INFORMATION
  Report Type: 
  Country: None (occurrence: None)
  Receive Date: 20050516
  Receipt Date: 20050509
  Transmission Date: 20051028
  Serious: Yes (Hospitalization)
  Sender: FDA-Public Use
  Company Number: ES-ABBOTT-05P-144-0300182-00

PATIENT
  Age: 60 Year
  Sex: Male
  Weight: 67 kg

DRUGS (9)
  1. ZEMPLAR [Suspect]
     Indication: HYPERPARATHYROIDISM
     Route: 042
     Dates: start: 20050418
  2. SACCHARATED IRON OXIDE [Concomitant]
     Indication: BLOOD IRON DECREASED
     Route: 042
     Dates: start: 20021219
  3. EPOGEN [Concomitant]
     Indication: ANAEMIA
     Dosage: 3000 UI
     Route: 042
     Dates: start: 20040910
  4. SEVELAMER HYDROCHLORIDE [Concomitant]
     Indication: CALCIUM METABOLISM DISORDER
     Route: 048
     Dates: start: 20031014
  5. SEVELAMER HYDROCHLORIDE [Concomitant]
     Indication: PHOSPHORUS METABOLISM DISORDER
  6. CALCIUM CARBONATE [Concomitant]
     Indication: CALCIUM METABOLISM DISORDER
     Route: 048
     Dates: start: 20040611
  7. CALCIUM CARBONATE [Concomitant]
     Indication: PHOSPHORUS METABOLISM DISORDER
  8. LERCANIDIPINE [Concomitant]
     Indication: HYPERTENSION
     Route: 048
     Dates: start: 20050429
  9. DOXAZOSIN MESYLATE [Concomitant]
     Indication: HYPERTENSION
     Route: 048
     Dates: start: 20050429

REACTIONS (1)
  - IMPLANT SITE INFECTION [None]
